FAERS Safety Report 10377099 (Version 1)
Quarter: 2014Q3

REPORT INFORMATION
  Report Type: Spontaneous
  Country: CN (occurrence: CN)
  Receive Date: 20140812
  Receipt Date: 20140812
  Transmission Date: 20150326
  Serious: Yes (Other)
  Sender: FDA-Public Use
  Company Number: CN-ASTRAZENECA-2014SE57199

PATIENT
  Sex: Male
  Weight: 60 kg

DRUGS (3)
  1. IPRATROPIUM BROMIDE. [Suspect]
     Active Substance: IPRATROPIUM BROMIDE
     Indication: WHEEZING
     Route: 065
     Dates: start: 20131226, end: 20131229
  2. TERBUTALINE SULFATE. [Suspect]
     Active Substance: TERBUTALINE SULFATE
     Indication: WHEEZING
     Route: 055
     Dates: start: 20131226, end: 20131229
  3. BUDESONIDE. [Suspect]
     Active Substance: BUDESONIDE
     Indication: WHEEZING
     Route: 055
     Dates: start: 20131226, end: 20131229

REACTIONS (1)
  - Supraventricular extrasystoles [Recovered/Resolved]
